FAERS Safety Report 7213894-1 (Version None)
Quarter: 2011Q1

REPORT INFORMATION
  Report Type: 
  Country: None (occurrence: None)
  Receive Date: 20110106
  Receipt Date: 20101229
  Transmission Date: 20110831
  Serious: Yes (Hospitalization)
  Sender: FDA-Public Use
  Company Number: US-ABBOTT-10P-163-0694497-00

PATIENT
  Sex: Male
  Weight: 104.42 kg

DRUGS (10)
  1. FOLIC ACID [Concomitant]
     Indication: VITAMIN SUPPLEMENTATION
  2. METOPROLOL [Concomitant]
     Indication: HYPERTENSION
  3. FELODIPINE [Concomitant]
     Indication: HYPERTENSION
  4. HUMIRA [Suspect]
     Route: 058
     Dates: start: 20060101
  5. NEXIUM [Concomitant]
     Indication: GASTROOESOPHAGEAL REFLUX DISEASE
  6. HUMIRA [Suspect]
     Indication: RHEUMATOID ARTHRITIS
     Route: 058
     Dates: start: 20051001, end: 20060101
  7. LEXAPRO [Concomitant]
     Indication: DEPRESSION
  8. MAG OXIDE [Concomitant]
     Indication: MINERAL SUPPLEMENTATION
  9. NEURONTIN [Concomitant]
     Indication: NEUROPATHY PERIPHERAL
     Dosage: AT NIGHT
  10. REMERON [Concomitant]
     Indication: DEPRESSION

REACTIONS (6)
  - CHILLS [None]
  - FEELING ABNORMAL [None]
  - DRUG INEFFECTIVE [None]
  - PNEUMONIA [None]
  - KNEE ARTHROPLASTY [None]
  - HIP ARTHROPLASTY [None]
